FAERS Safety Report 9660357 (Version 1)
Quarter: 2013Q4

REPORT INFORMATION
  Report Type: Not Available
  Country: US (occurrence: US)
  Receive Date: 20131031
  Receipt Date: 20131031
  Transmission Date: 20140711
  Serious: No
  Sender: FDA-Public Use
  Company Number: US-PURDUE-USA-2011-0074304

PATIENT
  Sex: Male

DRUGS (4)
  1. OXYCONTIN TABLETS [Suspect]
     Indication: PAIN
     Dosage: 10 MG, AM
     Route: 048
     Dates: start: 2006, end: 201011
  2. OXYCONTIN TABLETS [Suspect]
     Dosage: 80 MG, PM
     Route: 048
     Dates: start: 2006, end: 201011
  3. ROXICET [Concomitant]
     Indication: BREAKTHROUGH PAIN
     Dosage: 5 MG, QD PRN
  4. ROXICET [Concomitant]
     Indication: SOMNOLENCE

REACTIONS (1)
  - Pain [Unknown]
